FAERS Safety Report 4488782-4 (Version None)
Quarter: 2004Q4

REPORT INFORMATION
  Report Type: 
  Country: None (occurrence: None)
  Receive Date: 20041029
  Receipt Date: 20041019
  Transmission Date: 20050328
  Serious: Yes (Life-Threatening, Hospitalization)
  Sender: FDA-Public Use
  Company Number: US-JNJFOC-20040808577

PATIENT
  Sex: Male
  Weight: 68.95 kg

DRUGS (12)
  1. REMICADE [Suspect]
     Route: 042
  2. REMICADE [Suspect]
     Indication: RHEUMATOID ARTHRITIS
     Route: 042
  3. PREDNISONE [Concomitant]
     Route: 049
  4. ZOCOR [Concomitant]
     Route: 049
  5. SYNTHROID [Concomitant]
     Route: 049
  6. CARDIZEM [Concomitant]
     Route: 049
  7. AMBIEN [Concomitant]
     Route: 049
  8. ULTRAM [Concomitant]
     Route: 049
  9. METHOTREXATE [Concomitant]
     Route: 049
  10. VIOXX [Concomitant]
     Route: 003
  11. FOLIC ACID [Concomitant]
     Route: 049
  12. ACTONEL [Concomitant]
     Route: 049

REACTIONS (1)
  - MENINGITIS CRYPTOCOCCAL [None]
